FAERS Safety Report 23800448 (Version 1)
Quarter: 2024Q2

REPORT INFORMATION
  Report Type: Spontaneous
  Country: US (occurrence: None)
  Receive Date: 20240429
  Receipt Date: 20240429
  Transmission Date: 20240716
  Serious: No
  Sender: FDA-Public Use
  Company Number: None

PATIENT
  Age: 86 Year
  Sex: Female

DRUGS (1)
  1. POMALYST [Suspect]
     Active Substance: POMALIDOMIDE
     Indication: Plasma cell myeloma
     Dosage: 2 MG QD ORAL
     Route: 048
     Dates: start: 20240129, end: 20240228

REACTIONS (2)
  - Fatigue [None]
  - Drug intolerance [None]

NARRATIVE: CASE EVENT DATE: 20240228
